FAERS Safety Report 7312361-4 (Version None)
Quarter: 2011Q1

REPORT INFORMATION
  Report Type: 
  Country: None (occurrence: None)
  Receive Date: 20110224
  Receipt Date: 20110131
  Transmission Date: 20110831
  Serious: No
  Sender: FDA-Public Use
  Company Number: US-B.I. PHARMACEUTICALS,INC./RIDGEFIELD-2011-BP-03155BP

PATIENT
  Sex: Female

DRUGS (5)
  1. METHIMAZOLE [Concomitant]
     Indication: HYPERTHYROIDISM
     Route: 048
  2. FUROSEMIDE [Concomitant]
     Indication: FLUID RETENTION
     Route: 048
  3. PRADAXA [Suspect]
     Indication: ATRIAL FIBRILLATION
     Dosage: 300 MG
     Route: 048
     Dates: start: 20110123
  4. NEXIUM [Concomitant]
     Indication: GASTROOESOPHAGEAL REFLUX DISEASE
     Route: 048
  5. ASA [Concomitant]
     Indication: PROPHYLAXIS
     Route: 048

REACTIONS (3)
  - TACHYCARDIA [None]
  - CHEST DISCOMFORT [None]
  - DYSPNOEA [None]
